FAERS Safety Report 7331853-5 (Version None)
Quarter: 2011Q1

REPORT INFORMATION
  Report Type: 
  Country: None (occurrence: None)
  Receive Date: 20110304
  Receipt Date: 20091119
  Transmission Date: 20110831
  Serious: Yes (Other)
  Sender: FDA-Public Use
  Company Number: US-PFIZER INC-2009269901

PATIENT
  Sex: Male
  Weight: 113.38 kg

DRUGS (3)
  1. AVAPRO [Concomitant]
     Dosage: UNK
  2. NORVASC [Concomitant]
     Dosage: UNK
  3. DILANTIN [Suspect]
     Indication: EPILEPSY
     Dosage: 100 MG, 1X/DAY
     Route: 048
     Dates: start: 20071201

REACTIONS (5)
  - HEADACHE [None]
  - DRUG INEFFECTIVE [None]
  - PAIN [None]
  - CONVULSION [None]
  - CHEST PAIN [None]
